FAERS Safety Report 20885581 (Version 3)
Quarter: 2022Q4

REPORT INFORMATION
  Report Type: Report from Study
  Country: FR (occurrence: FR)
  Receive Date: 20220527
  Receipt Date: 20221116
  Transmission Date: 20230113
  Serious: Yes (Hospitalization, Other)
  Sender: FDA-Public Use
  Company Number: FR-GILEAD-2021-0562925

PATIENT
  Age: 50 Year
  Sex: Female
  Weight: 79 kg

DRUGS (6)
  1. SACITUZUMAB GOVITECAN [Suspect]
     Active Substance: SACITUZUMAB GOVITECAN
     Indication: Triple negative breast cancer
     Dosage: 10 MG/KG CYCLE 1 DAY 1 AND DAY 8
     Route: 042
     Dates: start: 20211207, end: 20211214
  2. SACITUZUMAB GOVITECAN [Suspect]
     Active Substance: SACITUZUMAB GOVITECAN
     Dosage: 10 MG/KG CYCLE 2 DAY 1
     Route: 042
     Dates: start: 20220118, end: 20220118
  3. SACITUZUMAB GOVITECAN [Suspect]
     Active Substance: SACITUZUMAB GOVITECAN
     Dosage: 10 MG/KG
     Route: 042
     Dates: end: 20220125
  4. PREDNISONE [Concomitant]
     Active Substance: PREDNISONE
  5. ALPRAZOLAM [Concomitant]
     Active Substance: ALPRAZOLAM
  6. PAROXETINE [Concomitant]
     Active Substance: PAROXETINE

REACTIONS (1)
  - Febrile neutropenia [Unknown]

NARRATIVE: CASE EVENT DATE: 20211216
